FAERS Safety Report 7324596-5 (Version None)
Quarter: 2011Q1

REPORT INFORMATION
  Report Type: 
  Country: None (occurrence: None)
  Receive Date: 20110301
  Receipt Date: 20110222
  Transmission Date: 20110831
  Serious: Yes (Death)
  Sender: FDA-Public Use
  Company Number: JP-PFIZER INC-2011038787

PATIENT
  Age: 78 Year
  Sex: Male

DRUGS (3)
  1. LYRICA [Suspect]
     Dosage: UNK
     Route: 048
  2. FENTANYL [Concomitant]
     Dosage: UNK
  3. GEMZAR [Concomitant]
     Dosage: UNK

REACTIONS (2)
  - PANCREATIC CARCINOMA [None]
  - DISEASE PROGRESSION [None]
